FAERS Safety Report 9403181 (Version 1)
Quarter: 2013Q3

REPORT INFORMATION
  Report Type: Spontaneous
  Country: US (occurrence: None)
  Receive Date: 20130715
  Receipt Date: 20130715
  Transmission Date: 20140515
  Serious: Yes (Other)
  Sender: FDA-Public Use
  Company Number: None

PATIENT
  Age: 42 Year
  Sex: Male

DRUGS (1)
  1. CYCLOBENZAPRINE [Suspect]
     Route: 048
     Dates: start: 20130524, end: 20130606

REACTIONS (5)
  - Dehydration [None]
  - Vomiting [None]
  - Feeling hot [None]
  - Cystitis [None]
  - Hepatic enzyme increased [None]
